FAERS Safety Report 6029474-X (Version None)
Quarter: 2009Q1

REPORT INFORMATION
  Report Type: 
  Country: None (occurrence: None)
  Receive Date: 20090105
  Receipt Date: 20090105
  Transmission Date: 20090719
  Serious: Yes (Hospitalization)
  Sender: FDA-Public Use
  Company Number: None

PATIENT
  Age: 42 Year
  Sex: Female
  Weight: 77.1115 kg

DRUGS (1)
  1. THERAFLU WARMING THERAFLU [Suspect]
     Indication: INFLUENZA
     Dosage: RECOMMENDED DOSE EVERY 6 HOURS PO
     Route: 048
     Dates: start: 20081106, end: 20081108

REACTIONS (3)
  - DIZZINESS [None]
  - GASTRIC HAEMORRHAGE [None]
  - RECTAL HAEMORRHAGE [None]
